FAERS Safety Report 5498293-5 (Version None)
Quarter: 2007Q4

REPORT INFORMATION
  Report Type: 
  Country: None (occurrence: None)
  Receive Date: 20071025
  Receipt Date: 20070426
  Transmission Date: 20080405
  Serious: No
  Sender: FDA-Public Use
  Company Number: A0648890A

PATIENT
  Age: 48 Year
  Sex: Female

DRUGS (5)
  1. ADVAIR DISKUS 100/50 [Suspect]
     Indication: ASTHMA
     Dosage: 1PUFF PER DAY
     Route: 055
  2. PREDNISONE [Concomitant]
  3. NASONEX [Concomitant]
  4. ALLERGY MEDICATION [Concomitant]
  5. INHALER [Concomitant]

REACTIONS (1)
  - DYSPNOEA [None]
